FAERS Safety Report 12529950 (Version 1)
Quarter: 2016Q3

REPORT INFORMATION
  Report Type: Spontaneous
  Country: US (occurrence: None)
  Receive Date: 20160705
  Receipt Date: 20160705
  Transmission Date: 20161109
  Serious: Yes (Disabling, Other)
  Sender: FDA-Public Use
  Company Number: None

PATIENT
  Age: 25 Year
  Sex: Male
  Weight: 113.4 kg

DRUGS (1)
  1. DEXTROAPM-AMPHET ER 25 MG CAP, 25 MG [Suspect]
     Active Substance: AMPHETAMINE ASPARTATE\AMPHETAMINE SULFATE\DEXTROAMPHETAMINE SACCHARATE\DEXTROAMPHETAMINE SULFATE
     Indication: ATTENTION DEFICIT/HYPERACTIVITY DISORDER
     Dosage: 30 CAPSULE(S) ONCE A DAY TAKEN BY MOUTH
     Route: 048
     Dates: start: 20160421, end: 20160421

REACTIONS (7)
  - Irritability [None]
  - Aggression [None]
  - Confusional state [None]
  - Withdrawal syndrome [None]
  - Muscle twitching [None]
  - Product quality issue [None]
  - Dyskinesia [None]

NARRATIVE: CASE EVENT DATE: 20160426
